FAERS Safety Report 4364635-7 (Version None)
Quarter: 2004Q2

REPORT INFORMATION
  Report Type: 
  Country: None (occurrence: None)
  Receive Date: 20040521
  Receipt Date: 20040512
  Transmission Date: 20050107
  Serious: Yes (Hospitalization, Other)
  Sender: FDA-Public Use
  Company Number: HQWYE711105MAY04

PATIENT
  Sex: Female

DRUGS (8)
  1. PROTONIX [Suspect]
     Indication: GASTROOESOPHAGEAL REFLUX DISEASE
     Dosage: 40 MG, ORAL
     Route: 048
     Dates: start: 20040301
  2. DOXEPIN (DOXEPIN) [Concomitant]
  3. DOGOXIN (DIGOXIN) [Concomitant]
  4. GEMFIBROZIL [Concomitant]
  5. AVANDIA [Concomitant]
  6. PLAVIX [Concomitant]
  7. ATENOLOL [Concomitant]
  8. CELEXA [Concomitant]

REACTIONS (6)
  - AMMONIA INCREASED [None]
  - COMA [None]
  - CONSTIPATION [None]
  - DIZZINESS [None]
  - DRUG INEFFECTIVE [None]
  - FEELING ABNORMAL [None]
